FAERS Safety Report 5333206-8 (Version None)
Quarter: 2007Q2

REPORT INFORMATION
  Report Type: 
  Country: None (occurrence: None)
  Receive Date: 20070524
  Receipt Date: 20070515
  Transmission Date: 20071010
  Serious: Yes (Hospitalization, Other)
  Sender: FDA-Public Use
  Company Number: PHBS2007JP02520

PATIENT
  Age: 87 Year
  Sex: Male

DRUGS (9)
  1. GLEEVEC [Suspect]
     Indication: CHRONIC MYELOID LEUKAEMIA
     Dosage: 400 MG/D
     Route: 048
     Dates: start: 20050627, end: 20050725
  2. GLEEVEC [Suspect]
     Dosage: 100 MG/D
     Route: 048
     Dates: start: 20051226, end: 20060611
  3. GLEEVEC [Suspect]
     Dosage: 200 MG/D
     Route: 048
     Dates: start: 20060612
  4. FAMOTIDINE [Concomitant]
     Route: 065
     Dates: start: 20060710
  5. MUCOSTA [Concomitant]
     Route: 065
  6. ASPIRIN [Concomitant]
     Route: 065
  7. LASIX [Concomitant]
     Route: 065
     Dates: start: 20050525
  8. CLEANAL [Concomitant]
     Route: 065
     Dates: start: 20050808
  9. URALYT [Concomitant]
     Route: 065
     Dates: start: 20060206

REACTIONS (9)
  - BRONCHIOLITIS [None]
  - DRUG ERUPTION [None]
  - DYSPNOEA [None]
  - HAEMATOCRIT DECREASED [None]
  - HAEMOGLOBIN DECREASED [None]
  - PLATELET COUNT DECREASED [None]
  - PYREXIA [None]
  - RED BLOOD CELL COUNT DECREASED [None]
  - WHITE BLOOD CELL COUNT DECREASED [None]
